FAERS Safety Report 10420741 (Version 1)
Quarter: 2014Q1

REPORT INFORMATION
  Report Type: Spontaneous
  Country: US (occurrence: None)
  Receive Date: 20130924
  Receipt Date: 20130924
  Transmission Date: 20141002
  Serious: No
  Sender: FDA-Public Use
  Company Number: 2013000251S

PATIENT
  Age: 55 Year
  Sex: Female

DRUGS (4)
  1. OSPHENA (OSPEMIFENE) TABLET [Suspect]
     Indication: VULVOVAGINAL DRYNESS
     Dates: start: 20130613
  2. OSPHENA (OSPEMIFENE) TABLET [Suspect]
     Indication: OFF LABEL USE
     Dates: start: 20130613
  3. CALCIUM [Concomitant]
  4. VITAMIN D (ERGOCALCIFEROL) [Concomitant]

REACTIONS (4)
  - Lip swelling [None]
  - Blister [None]
  - Scab [None]
  - Off label use [None]
